FAERS Safety Report 21243062 (Version 3)
Quarter: 2025Q2

REPORT INFORMATION
  Report Type: Spontaneous
  Country: GB (occurrence: GB)
  Receive Date: 20220823
  Receipt Date: 20250623
  Transmission Date: 20250717
  Serious: Yes (Hospitalization)
  Sender: GLAXOSMITHKLINE
  Company Number: None

PATIENT
  Sex: Female

DRUGS (23)
  1. ACYCLOVIR [Suspect]
     Active Substance: ACYCLOVIR
     Indication: Product used for unknown indication
     Route: 065
  2. ACYCLOVIR [Suspect]
     Active Substance: ACYCLOVIR
     Dosage: 800 MG, QD (400 MILLIGRAM, TWO TIMES A DAY (800 MG ONCE A DAY)
     Route: 065
  3. METOCLOPRAMIDE [Suspect]
     Active Substance: METOCLOPRAMIDE
     Indication: Product used for unknown indication
     Dosage: 10 MG, QD
     Route: 065
  4. DEXAMETHASONE [Suspect]
     Active Substance: DEXAMETHASONE
     Indication: Plasma cell myeloma refractory
     Dosage: 10 MG, WE
     Route: 065
  5. DEXAMETHASONE [Suspect]
     Active Substance: DEXAMETHASONE
     Dosage: 10 MG, QD
     Route: 065
  6. IXAZOMIB [Suspect]
     Active Substance: IXAZOMIB
     Indication: Plasma cell myeloma refractory
     Dosage: 2.5 MG, WE
  7. REVLIMID [Suspect]
     Active Substance: LENALIDOMIDE
     Indication: Plasma cell myeloma refractory
     Dosage: 10 MG, QD
  8. REVLIMID [Suspect]
     Active Substance: LENALIDOMIDE
     Dosage: 10 MG, Q3W
     Route: 065
  9. LENALIDOMIDE [Suspect]
     Active Substance: LENALIDOMIDE
     Indication: Product used for unknown indication
     Dosage: 10 MG, QD
  10. LANSOPRAZOLE [Suspect]
     Active Substance: LANSOPRAZOLE
     Indication: Product used for unknown indication
     Dosage: 30 MG, QD
     Route: 065
  11. LANSOPRAZOLE [Suspect]
     Active Substance: LANSOPRAZOLE
     Route: 065
  12. NINLARO [Suspect]
     Active Substance: IXAZOMIB CITRATE
     Indication: Product used for unknown indication
     Dosage: 2.5 MG, WE
  13. NINLARO [Suspect]
     Active Substance: IXAZOMIB CITRATE
     Dosage: 5 MG, WE
     Route: 065
  14. NINLARO [Suspect]
     Active Substance: IXAZOMIB CITRATE
     Dosage: 1 MG, WE
     Route: 065
  15. NINLARO [Suspect]
     Active Substance: IXAZOMIB CITRATE
     Dosage: 1 MG, WE
     Route: 065
  16. NINLARO [Suspect]
     Active Substance: IXAZOMIB CITRATE
     Dosage: 2.5 MG, WE
     Route: 065
  17. NINLARO [Suspect]
     Active Substance: IXAZOMIB CITRATE
     Dosage: 5 MG, WE
     Route: 065
  18. NINLARO [Suspect]
     Active Substance: IXAZOMIB CITRATE
     Dosage: 1 MG, WE
     Route: 065
  19. NINLARO [Suspect]
     Active Substance: IXAZOMIB CITRATE
     Dosage: 2.5 MG, WE
     Route: 065
  20. NINLARO [Suspect]
     Active Substance: IXAZOMIB CITRATE
     Dosage: 5 MG, WE
     Route: 065
  21. NINLARO [Suspect]
     Active Substance: IXAZOMIB CITRATE
     Dosage: 3 MG, WE
     Route: 065
  22. NINLARO [Suspect]
     Active Substance: IXAZOMIB CITRATE
     Route: 065
  23. LOPERAMIDE [Concomitant]
     Active Substance: LOPERAMIDE
     Indication: Product used for unknown indication
     Route: 065

REACTIONS (7)
  - Panic attack [Not Recovered/Not Resolved]
  - Chronic obstructive pulmonary disease [Unknown]
  - Swelling [Unknown]
  - Peripheral swelling [Unknown]
  - Pain [Not Recovered/Not Resolved]
  - Product dose omission issue [Unknown]
  - Inappropriate schedule of product administration [Unknown]
